FAERS Safety Report 5873845-9 (Version None)
Quarter: 2008Q3

REPORT INFORMATION
  Report Type: 
  Country: None (occurrence: None)
  Receive Date: 20080903
  Receipt Date: 20080903
  Transmission Date: 20090109
  Serious: Yes (Life-Threatening, Hospitalization)
  Sender: FDA-Public Use
  Company Number: None

PATIENT
  Age: 54 Year
  Sex: Female
  Weight: 107.9561 kg

DRUGS (1)
  1. LYRICA [Suspect]
     Indication: NEUROPATHY PERIPHERAL
     Dosage: TWO A DAY 300MG
     Dates: start: 20060202, end: 20080205

REACTIONS (7)
  - ABSCESS [None]
  - ALOPECIA [None]
  - CARDIAC DISORDER [None]
  - DIZZINESS [None]
  - FALL [None]
  - OEDEMA [None]
  - WEIGHT DECREASED [None]
